FAERS Safety Report 8560346-2 (Version None)
Quarter: 2012Q3

REPORT INFORMATION
  Report Type: 
  Country: None (occurrence: None)
  Receive Date: 20120802
  Receipt Date: 20120720
  Transmission Date: 20120928
  Serious: Yes (Hospitalization, Other)
  Sender: FDA-Public Use
  Company Number: US-009507513-1201USA02284

PATIENT

DRUGS (13)
  1. FOSAMAX [Suspect]
     Dosage: 70 MG, QW
     Route: 048
     Dates: end: 20100113
  2. CALCIUM (UNSPECIFIED) [Concomitant]
     Dosage: 1500 MG, QD
  3. VITAMIN D (UNSPECIFIED) [Concomitant]
     Dosage: 400 U, QD
  4. FOSAMAX [Suspect]
     Indication: OSTEOPOROSIS
     Dosage: 10 MG, UNK
     Route: 048
     Dates: start: 19970901, end: 20010601
  5. FOSAMAX [Suspect]
     Route: 048
  6. MK-9278 [Concomitant]
     Dosage: UNK UNK, QD
  7. PREMPRO [Concomitant]
  8. FOSAMAX [Suspect]
     Dosage: 70 MG, UNK
     Route: 048
     Dates: start: 20010601, end: 20070601
  9. DEPO-MEDROL [Concomitant]
     Dates: start: 20010621
  10. MIACALCIN [Concomitant]
     Dosage: QD
  11. BONIVA [Suspect]
     Indication: OSTEOPOROSIS
     Dosage: 150 MG, UNK
     Dates: start: 20070601, end: 20100101
  12. NORPRAMIN [Concomitant]
     Dosage: 25-100
     Dates: start: 19970519
  13. ZANAFLEX [Concomitant]
     Dosage: 4-8
     Dates: start: 20020314, end: 20061208

REACTIONS (41)
  - TYPE 2 DIABETES MELLITUS [None]
  - THROMBOSIS [None]
  - ADVERSE EVENT [None]
  - DYSPLASTIC NAEVUS [None]
  - MORTON'S NEUROMA [None]
  - NERVE COMPRESSION [None]
  - LIMB DISCOMFORT [None]
  - ARTHRALGIA [None]
  - HYPERTENSION [None]
  - FATIGUE [None]
  - PALPITATIONS [None]
  - CHEST PAIN [None]
  - ABDOMINAL DISCOMFORT [None]
  - GASTRITIS [None]
  - HYPOTHYROIDISM [None]
  - WOUND HAEMATOMA [None]
  - BURSITIS [None]
  - NEOPLASM SKIN [None]
  - VIRAL INFECTION [None]
  - GASTROOESOPHAGEAL REFLUX DISEASE [None]
  - SCIATICA [None]
  - ANAEMIA [None]
  - PERIPHERAL VASCULAR DISORDER [None]
  - NEUROPATHY PERIPHERAL [None]
  - DRUG HYPERSENSITIVITY [None]
  - MUSCULOSKELETAL PAIN [None]
  - DIABETIC NEUROPATHY [None]
  - CHOLELITHIASIS [None]
  - WRIST FRACTURE [None]
  - DRUG INEFFECTIVE [None]
  - BACK PAIN [None]
  - DIZZINESS [None]
  - FEMUR FRACTURE [None]
  - CORONARY ARTERY STENOSIS [None]
  - CEREBRAL INFARCTION [None]
  - PARAESTHESIA [None]
  - LOW TURNOVER OSTEOPATHY [None]
  - COLONIC POLYP [None]
  - NASAL DRYNESS [None]
  - MUSCULOSKELETAL DISORDER [None]
  - HEPATIC STEATOSIS [None]
